FAERS Safety Report 6530024-X (Version None)
Quarter: 2010Q1

REPORT INFORMATION
  Report Type: 
  Country: None (occurrence: None)
  Receive Date: 20100107
  Receipt Date: 20091228
  Transmission Date: 20100710
  Serious: No
  Sender: FDA-Public Use
  Company Number: US-B.I. PHARMACEUTICALS,INC./RIDGEFIELD-2009-BP-14804BP

PATIENT
  Age: 66 Year
  Sex: Male

DRUGS (1)
  1. SPIRIVA [Suspect]

REACTIONS (3)
  - CLUSTER HEADACHE [None]
  - HEADACHE [None]
  - MIGRAINE [None]
